FAERS Safety Report 23602940 (Version 3)
Quarter: 2024Q2

REPORT INFORMATION
  Report Type: Report from Study
  Country: US (occurrence: US)
  Receive Date: 20240306
  Receipt Date: 20240516
  Transmission Date: 20240716
  Serious: Yes (Hospitalization)
  Sender: FDA-Public Use
  Company Number: US-ABBVIE-5645873

PATIENT
  Age: 58 Year
  Sex: Female

DRUGS (4)
  1. RINVOQ [Suspect]
     Active Substance: UPADACITINIB
     Indication: Ankylosing spondylitis
     Dosage: FORM STRENGTH: 15MG
     Route: 048
     Dates: start: 20231221
  2. RINVOQ [Suspect]
     Active Substance: UPADACITINIB
     Indication: Ankylosing spondylitis
     Dosage: FORM STRENGTH: 15MG
     Route: 048
     Dates: start: 202402
  3. RINVOQ [Suspect]
     Active Substance: UPADACITINIB
     Indication: Ankylosing spondylitis
     Dosage: LAST ADMIN DATE: 2023/FORM STRENGTH: 15MG
     Route: 048
     Dates: start: 20231114
  4. RINVOQ [Suspect]
     Active Substance: UPADACITINIB
     Indication: Ankylosing spondylitis
     Dosage: LAST ADMIN DATE: 2023/FORM STRENGTH: 15MG
     Route: 048
     Dates: start: 202310

REACTIONS (12)
  - Foot fracture [Recovering/Resolving]
  - Ankylosing spondylitis [Recovering/Resolving]
  - Sinusitis [Recovered/Resolved]
  - Fall [Recovering/Resolving]
  - Headache [Recovered/Resolved]
  - Insomnia [Unknown]
  - Ear infection [Recovered/Resolved]
  - Gait disturbance [Unknown]
  - Product dose omission in error [Unknown]
  - Sciatica [Unknown]
  - Drug hypersensitivity [Unknown]
  - Pain in extremity [Unknown]

NARRATIVE: CASE EVENT DATE: 20240101
